FAERS Safety Report 11409260 (Version 1)
Quarter: 2015Q3

REPORT INFORMATION
  Report Type: Spontaneous
  Country: NZ (occurrence: None)
  Receive Date: 20150820
  Receipt Date: 20150820
  Transmission Date: 20151125
  Serious: Yes (Hospitalization, Disabling, Congenital Anomaly)
  Sender: FDA-Public Use
  Company Number: None

PATIENT
  Age: 2 Month
  Sex: Female
  Weight: 3.95 kg

DRUGS (1)
  1. ZOFRAN [Suspect]
     Active Substance: ONDANSETRON HYDROCHLORIDE
     Indication: HYPEREMESIS GRAVIDARUM
     Dosage: ONE PILL
     Route: 048

REACTIONS (5)
  - Liver disorder [None]
  - Gastric disorder [None]
  - Ankyloglossia congenital [None]
  - Maternal drugs affecting foetus [None]
  - Talipes [None]

NARRATIVE: CASE EVENT DATE: 20150820
